FAERS Safety Report 5211923-8 (Version None)
Quarter: 2007Q1

REPORT INFORMATION
  Report Type: 
  Country: None (occurrence: None)
  Receive Date: 20070118
  Receipt Date: 20070109
  Transmission Date: 20070707
  Serious: Yes (Hospitalization)
  Sender: FDA-Public Use
  Company Number: 2007CG00066

PATIENT
  Age: 58 Year
  Sex: Male

DRUGS (10)
  1. NEXIUM [Suspect]
     Route: 048
     Dates: start: 20061104, end: 20061128
  2. TRAMADOL HCL [Suspect]
     Route: 048
     Dates: start: 20061111, end: 20061128
  3. PIRILENE [Suspect]
     Route: 048
     Dates: start: 20061022, end: 20061128
  4. RIVOTRIL [Suspect]
     Route: 048
     Dates: start: 20061114, end: 20061128
  5. RIFADIN [Concomitant]
     Route: 048
     Dates: start: 20061022
  6. RIMIFON [Concomitant]
     Route: 048
     Dates: start: 20061022, end: 20061105
  7. RIMIFON [Concomitant]
     Route: 048
     Dates: start: 20061105, end: 20061201
  8. RIMIFON [Concomitant]
     Route: 048
     Dates: start: 20061210
  9. MYAMBUTHOL [Concomitant]
     Dates: start: 20061022
  10. ZEFFIX [Concomitant]
     Dates: start: 20061127

REACTIONS (3)
  - BLOOD BILIRUBIN INCREASED [None]
  - GAMMA-GLUTAMYLTRANSFERASE INCREASED [None]
  - HEPATIC ENZYME INCREASED [None]
